FAERS Safety Report 14662193 (Version 1)
Quarter: 2018Q1

REPORT INFORMATION
  Report Type: Spontaneous
  Country: CN (occurrence: CN)
  Receive Date: 20180321
  Receipt Date: 20180321
  Transmission Date: 20180509
  Serious: Yes (Hospitalization)
  Sender: FDA-Public Use
  Company Number: CN-CIPLA LTD.-2018CN12054

PATIENT

DRUGS (4)
  1. PIRACETAM [Concomitant]
     Active Substance: PIRACETAM
     Indication: DEMENTIA ALZHEIMER^S TYPE
     Dosage: 1.2 G, TID
     Route: 048
  2. OLANZAPINE. [Suspect]
     Active Substance: OLANZAPINE
     Indication: DEPRESSION
     Dosage: 10 MG, DAILY
     Route: 048
  3. MEMANTINE HYDROCHLORIDE. [Concomitant]
     Active Substance: MEMANTINE HYDROCHLORIDE
     Indication: DEMENTIA ALZHEIMER^S TYPE
     Dosage: 20 MG, DAILY
     Route: 048
  4. PAROXETINE. [Concomitant]
     Active Substance: PAROXETINE
     Indication: DEMENTIA ALZHEIMER^S TYPE
     Dosage: 20 MG, DAILY
     Route: 048

REACTIONS (3)
  - Eosinophilia [Recovered/Resolved]
  - Eosinophilic pleural effusion [Recovered/Resolved]
  - Off label use [Unknown]
